FAERS Safety Report 13795440 (Version 2)
Quarter: 2018Q1

REPORT INFORMATION
  Report Type: Spontaneous
  Country: FR (occurrence: FR)
  Receive Date: 20170726
  Receipt Date: 20180320
  Transmission Date: 20180508
  Serious: Yes (Other)
  Sender: FDA-Public Use
  Company Number: PHHY2017FR106280

PATIENT
  Age: 86 Year
  Sex: Female

DRUGS (1)
  1. PREDNISONE. [Suspect]
     Active Substance: PREDNISONE
     Indication: SUBDURAL HAEMATOMA
     Dosage: 80 MG, QD
     Route: 065
     Dates: start: 2009

REACTIONS (4)
  - Partial seizures [Unknown]
  - Cerebral venous thrombosis [Recovered/Resolved]
  - Venous thrombosis [Recovered/Resolved]
  - Off label use [Unknown]
